FAERS Safety Report 7179971-9 (Version None)
Quarter: 2010Q4

REPORT INFORMATION
  Report Type: 
  Country: None (occurrence: None)
  Receive Date: 20101221
  Receipt Date: 20101213
  Transmission Date: 20110411
  Serious: Yes (Life-Threatening, Hospitalization)
  Sender: FDA-Public Use
  Company Number: EG-MERCK-1012USA02257

PATIENT
  Age: 65 Year
  Sex: Male
  Weight: 65 kg

DRUGS (4)
  1. INVANZ [Suspect]
     Indication: DIABETIC FOOT INFECTION
     Route: 042
     Dates: start: 20101205, end: 20101201
  2. INVANZ [Suspect]
     Route: 042
     Dates: start: 20101201, end: 20101210
  3. DIGITALIS [Concomitant]
     Indication: CARDIAC DISORDER
     Route: 048
  4. CALCIUM (UNSPECIFIED) [Concomitant]
     Indication: RENAL FAILURE
     Route: 048

REACTIONS (4)
  - ARRHYTHMIA [None]
  - CONFUSIONAL STATE [None]
  - DEPRESSED LEVEL OF CONSCIOUSNESS [None]
  - OVERDOSE [None]
